FAERS Safety Report 9033032 (Version 2)
Quarter: 2013Q1

REPORT INFORMATION
  Report Type: Spontaneous
  Country: US (occurrence: US)
  Receive Date: 20130128
  Receipt Date: 20130219
  Transmission Date: 20140127
  Serious: Yes (Life-Threatening)
  Sender: FDA-Public Use
  Company Number: PHEH2013US001744

PATIENT
  Sex: Female

DRUGS (5)
  1. RECLAST [Suspect]
     Dosage: 5 MG, UNK
     Route: 042
     Dates: start: 20130116
  2. BABY ASPIRIN [Concomitant]
  3. LIPITOR [Concomitant]
  4. MULTIVIT [Concomitant]
  5. LEVOTHROID [Concomitant]

REACTIONS (3)
  - Incorrect route of drug administration [Unknown]
  - Infusion site swelling [Unknown]
  - Incorrect dose administered [Unknown]
